FAERS Safety Report 8425609-X (Version None)
Quarter: 2012Q2

REPORT INFORMATION
  Report Type: 
  Country: None (occurrence: None)
  Receive Date: 20120611
  Receipt Date: 20120531
  Transmission Date: 20120825
  Serious: Yes (Other)
  Sender: FDA-Public Use
  Company Number: JP-VERTEX PHARMACEUTICALS INC.-AE-2012-008220

PATIENT
  Age: 35 Year
  Sex: Female

DRUGS (9)
  1. SHAKUYAKUKANZOTO [Concomitant]
     Route: 048
     Dates: end: 20120508
  2. PEGINTERFERON ALFA-2B [Concomitant]
     Indication: HEPATITIS C
     Route: 051
     Dates: start: 20120409, end: 20120409
  3. PEGINTERFERON ALFA-2B [Concomitant]
     Route: 051
     Dates: start: 20120416, end: 20120501
  4. PEGINTERFERON ALFA-2B [Concomitant]
     Route: 051
     Dates: start: 20120507, end: 20120507
  5. LAC -B [Concomitant]
     Dates: end: 20120508
  6. TELAVIC (TELAPREVIR) [Suspect]
     Indication: HEPATITIS C
     Route: 048
     Dates: start: 20120409, end: 20120413
  7. RIBAVIRIN [Concomitant]
     Indication: HEPATITIS C
     Route: 048
     Dates: start: 20120409, end: 20120508
  8. TELAVIC (TELAPREVIR) [Suspect]
     Route: 048
     Dates: start: 20120414, end: 20120501
  9. TELAVIC (TELAPREVIR) [Suspect]
     Route: 048
     Dates: start: 20120502, end: 20120508

REACTIONS (1)
  - NEUTROPHIL COUNT DECREASED [None]
